FAERS Safety Report 13579380 (Version 2)
Quarter: 2017Q2

REPORT INFORMATION
  Report Type: Spontaneous
  Country: FR (occurrence: FR)
  Receive Date: 20170525
  Receipt Date: 20170626
  Transmission Date: 20170830
  Serious: Yes (Hospitalization)
  Sender: FDA-Public Use
  Company Number: FR-FERRINGPH-2017FE02277

PATIENT

DRUGS (3)
  1. AVLOCARDYL                         /00030001/ [Concomitant]
     Active Substance: PROPRANOLOL HYDROCHLORIDE
     Indication: PRODUCT USED FOR UNKNOWN INDICATION
     Dosage: 1 DF, DAILY
     Route: 065
  2. VALSARTAN. [Concomitant]
     Active Substance: VALSARTAN
     Indication: PRODUCT USED FOR UNKNOWN INDICATION
     Dosage: 1 DF, UNK
     Route: 048
  3. PICOPREP [Suspect]
     Active Substance: ANHYDROUS CITRIC ACID\MAGNESIUM OXIDE\SODIUM PICOSULFATE
     Indication: BOWEL PREPARATION
     Dosage: 1 SACHET AT 2:00 PM AND 1 SACHET AT 8:00 PM
     Route: 065
     Dates: start: 20170502, end: 20170502

REACTIONS (10)
  - Malaise [Recovered/Resolved]
  - Treatment noncompliance [Recovered/Resolved]
  - C-reactive protein increased [Unknown]
  - Hyponatraemia [Recovered/Resolved]
  - Loss of consciousness [Recovered/Resolved]
  - Syncope [Recovered/Resolved]
  - Anaemia [Unknown]
  - Rhabdomyolysis [Unknown]
  - Coma [Recovered/Resolved]
  - Vomiting [Recovered/Resolved]

NARRATIVE: CASE EVENT DATE: 20170502
